FAERS Safety Report 23590111 (Version 2)
Quarter: 2024Q1

REPORT INFORMATION
  Report Type: Spontaneous
  Country: JP (occurrence: JP)
  Receive Date: 20240304
  Receipt Date: 20240327
  Transmission Date: 20240410
  Serious: Yes (Death, Other)
  Sender: FDA-Public Use
  Company Number: JP-CHUGAI-2023046465

PATIENT
  Age: 48 Year
  Sex: Male
  Weight: 54.2 kg

DRUGS (3)
  1. TECENTRIQ [Suspect]
     Active Substance: ATEZOLIZUMAB
     Indication: Neuroendocrine tumour of the lung
     Dosage: 1200 MILLIGRAM
     Route: 065
     Dates: start: 20231219, end: 20231219
  2. CARBOPLATIN [Concomitant]
     Active Substance: CARBOPLATIN
     Indication: Neuroendocrine tumour of the lung
     Dosage: UNK
     Dates: start: 20231219, end: 20231219
  3. PACLITAXEL [Concomitant]
     Active Substance: PACLITAXEL
     Indication: Neuroendocrine tumour of the lung
     Dosage: UNK
     Dates: start: 20231219, end: 20231219

REACTIONS (4)
  - Disease progression [Fatal]
  - Haemophagocytic lymphohistiocytosis [Fatal]
  - Disseminated intravascular coagulation [Not Recovered/Not Resolved]
  - Catheter site haemorrhage [Not Recovered/Not Resolved]

NARRATIVE: CASE EVENT DATE: 20231219
